FAERS Safety Report 7018213-1 (Version None)
Quarter: 2010Q3

REPORT INFORMATION
  Report Type: 
  Country: None (occurrence: None)
  Receive Date: 20100928
  Receipt Date: 20100921
  Transmission Date: 20110219
  Serious: Yes (Hospitalization)
  Sender: FDA-Public Use
  Company Number: FR-ROCHE-728569

PATIENT
  Sex: Female
  Weight: 59 kg

DRUGS (5)
  1. PEGINTERFERON ALFA-2A [Suspect]
     Route: 065
  2. EPOETIN BETA [Suspect]
     Dosage: DOSE: 30000 UI
     Route: 058
     Dates: start: 20100909, end: 20100917
  3. RIBAVIRIN [Concomitant]
     Dosage: TAKEN AS CONCOMITTANT DRUG AS PER PROTOCOL
  4. ALDACTONE [Concomitant]
     Dates: start: 20080901
  5. FUROSEMIDE [Concomitant]
     Dates: start: 20080901

REACTIONS (1)
  - FEBRILE NEUTROPENIA [None]
